FAERS Safety Report 7084478-3 (Version None)
Quarter: 2010Q4

REPORT INFORMATION
  Report Type: 
  Country: None (occurrence: None)
  Receive Date: 20101104
  Receipt Date: 20101029
  Transmission Date: 20110411
  Serious: Yes (Hospitalization)
  Sender: FDA-Public Use
  Company Number: FR-PFIZER INC-2007102635

PATIENT
  Age: 77 Year
  Sex: Male
  Weight: 65 kg

DRUGS (18)
  1. BLINDED *NO SUBJECT DRUG [Suspect]
     Indication: CARDIAC FAILURE
     Dosage: UNK
     Route: 048
     Dates: start: 20061013
  2. BLINDED *PLACEBO [Suspect]
     Indication: CARDIAC FAILURE
     Dosage: UNK
     Route: 048
     Dates: start: 20061013
  3. BLINDED EPLERENONE [Suspect]
     Indication: CARDIAC FAILURE
     Dosage: UNK
     Route: 048
     Dates: start: 20061013
  4. BLINDED *NO SUBJECT DRUG [Suspect]
     Dosage: UNK
     Dates: start: 20100822, end: 20100831
  5. BLINDED *PLACEBO [Suspect]
     Dosage: UNK
     Dates: start: 20100822, end: 20100831
  6. BLINDED EPLERENONE [Suspect]
     Dosage: UNK
     Dates: start: 20100822, end: 20100831
  7. BLINDED *NO SUBJECT DRUG [Suspect]
     Dosage: UNK
     Dates: start: 20070913, end: 20071013
  8. BLINDED *PLACEBO [Suspect]
     Dosage: UNK
     Dates: start: 20070913, end: 20071013
  9. BLINDED EPLERENONE [Suspect]
     Dosage: UNK
     Dates: start: 20070913, end: 20071013
  10. LASIX [Concomitant]
     Route: 048
     Dates: start: 20060906
  11. DIGOXINE [Concomitant]
     Route: 048
     Dates: start: 20060904
  12. PREVISCAN [Concomitant]
     Route: 048
     Dates: start: 20060904
  13. CORDIPATCH [Concomitant]
     Route: 062
     Dates: start: 20050901
  14. STABLON [Concomitant]
     Route: 048
     Dates: start: 20050901, end: 20070820
  15. ANDROCUR [Concomitant]
     Route: 048
     Dates: start: 20061207
  16. NOCTRAN 10 [Concomitant]
     Route: 048
     Dates: start: 20070708, end: 20070821
  17. ALLOPURINOL [Concomitant]
     Route: 048
     Dates: start: 20070710, end: 20070820
  18. DIFFU K [Concomitant]
     Route: 048
     Dates: start: 20060701, end: 20070821

REACTIONS (1)
  - DEMENTIA [None]
